FAERS Safety Report 8389645-4 (Version None)
Quarter: 2012Q2

REPORT INFORMATION
  Report Type: 
  Country: None (occurrence: None)
  Receive Date: 20120528
  Receipt Date: 20120515
  Transmission Date: 20120825
  Serious: Yes (Other)
  Sender: FDA-Public Use
  Company Number: US-ROCHE-1064343

PATIENT
  Age: 65 Year
  Sex: Female
  Weight: 80.812 kg

DRUGS (6)
  1. PROCHLORPERAZINE [Concomitant]
     Indication: NAUSEA
     Route: 048
  2. DOCETAXEL [Concomitant]
     Indication: BREAST CANCER
     Route: 042
  3. CARBOPLATIN [Concomitant]
     Indication: BREAST CANCER
     Route: 042
  4. HERCEPTIN [Suspect]
     Indication: BREAST CANCER
     Route: 042
     Dates: start: 20120308
  5. OMEPRAZOLE [Concomitant]
     Indication: GASTROOESOPHAGEAL REFLUX DISEASE
     Dosage: EVERY MORNING
     Route: 048
  6. PAXIL [Concomitant]
     Indication: DEPRESSION
     Route: 048

REACTIONS (8)
  - ALOPECIA [None]
  - DEPRESSION [None]
  - NAUSEA [None]
  - FATIGUE [None]
  - VOMITING [None]
  - DIZZINESS [None]
  - CONSTIPATION [None]
  - WHITE BLOOD CELL COUNT DECREASED [None]
